FAERS Safety Report 9040731 (Version 1)
Quarter: 2013Q1

REPORT INFORMATION
  Report Type: Report from Study
  Country: US (occurrence: US)
  Receive Date: 20130129
  Receipt Date: 20130129
  Transmission Date: 20140127
  Serious: No
  Sender: FDA-Public Use
  Company Number: US-ABBOTT-12P-163-0891666-00

PATIENT
  Age: 44 None
  Sex: Male
  Weight: 136.2 kg

DRUGS (25)
  1. HUMIRA 40 MG/ 0.8 ML PRE-FILLED SYRINGE [Suspect]
     Indication: RHEUMATOID ARTHRITIS
     Dates: start: 200712, end: 200801
  2. HUMIRA 40 MG/ 0.8 ML PRE-FILLED SYRINGE [Suspect]
     Indication: ANKYLOSING SPONDYLITIS
     Dates: start: 200801, end: 2009
  3. HUMIRA 40 MG/ 0.8 ML PRE-FILLED SYRINGE [Suspect]
     Indication: PSORIATIC ARTHROPATHY
     Dates: start: 201111
  4. HUMIRA 40 MG/ 0.8 ML PRE-FILLED SYRINGE [Suspect]
     Indication: SPINAL COLUMN STENOSIS
  5. HUMIRA 40 MG/ 0.8 ML PRE-FILLED SYRINGE [Suspect]
     Indication: PSORIASIS
  6. ENBREL [Suspect]
     Indication: RHEUMATOID ARTHRITIS
     Dosage: NOT REPORTED
     Dates: start: 201012, end: 201110
  7. ENBREL [Suspect]
     Indication: ANKYLOSING SPONDYLITIS
  8. ENBREL [Suspect]
     Indication: PSORIATIC ARTHROPATHY
  9. ENBREL [Suspect]
     Indication: SPINAL COLUMN STENOSIS
  10. ENBREL [Suspect]
     Indication: PSORIASIS
  11. ABILIFY [Concomitant]
     Indication: BIPOLAR DISORDER
     Dosage: NOT REPORTED
  12. BENTYL [Concomitant]
     Indication: IRRITABLE BOWEL SYNDROME
     Dosage: NOT REPORTED
  13. LOMOTIL [Concomitant]
     Indication: IRRITABLE BOWEL SYNDROME
     Dosage: NOT REPORTED
  14. TRIAMCINOLONE [Concomitant]
     Indication: LYMPHOEDEMA
     Dosage: NOT REPORTED
     Route: 061
  15. LASIX [Concomitant]
     Indication: OEDEMA PERIPHERAL
     Dosage: NOT REPORTED
  16. LASIX [Concomitant]
     Indication: HYPERTENSION
  17. ATIVAN [Concomitant]
     Indication: ANXIETY
     Dosage: NOT REPORTED
  18. LABETALOL [Concomitant]
     Indication: HYPERTENSION
     Dosage: NOT REPORTED
  19. MIRALAX [Concomitant]
     Indication: CONSTIPATION
     Dosage: NOT REPORTED
  20. TOPAMAX [Concomitant]
     Indication: BIPOLAR DISORDER
     Dosage: NOT REPORTED
  21. TOPAMAX [Concomitant]
     Indication: DEPRESSION
  22. TOPAMAX [Concomitant]
     Indication: MIGRAINE
  23. VERAPAMIL [Concomitant]
     Indication: MIGRAINE
     Dosage: ER;  NOT REPORTED
  24. VERAPAMIL [Concomitant]
     Indication: IRRITABLE BOWEL SYNDROME
  25. VERAPAMIL [Concomitant]
     Indication: ARRHYTHMIA

REACTIONS (28)
  - Off label use [Not Recovered/Not Resolved]
  - Psoriasis [Not Recovered/Not Resolved]
  - Psoriasis [Not Recovered/Not Resolved]
  - Psoriasis [Not Recovered/Not Resolved]
  - Psoriasis [Not Recovered/Not Resolved]
  - Psoriasis [Not Recovered/Not Resolved]
  - Skin exfoliation [Not Recovered/Not Resolved]
  - Arthritis [Not Recovered/Not Resolved]
  - Arthritis [Not Recovered/Not Resolved]
  - Arthralgia [Not Recovered/Not Resolved]
  - Arthritis [Not Recovered/Not Resolved]
  - Arthralgia [Not Recovered/Not Resolved]
  - Joint crepitation [Not Recovered/Not Resolved]
  - Jaw disorder [Not Recovered/Not Resolved]
  - Jaw disorder [Not Recovered/Not Resolved]
  - Stomatitis [Not Recovered/Not Resolved]
  - Oral pain [Not Recovered/Not Resolved]
  - Coccydynia [Not Recovered/Not Resolved]
  - Back pain [Not Recovered/Not Resolved]
  - Muscle spasms [Not Recovered/Not Resolved]
  - Condition aggravated [Not Recovered/Not Resolved]
  - Muscle tightness [Not Recovered/Not Resolved]
  - Condition aggravated [Not Recovered/Not Resolved]
  - Drug ineffective [Not Recovered/Not Resolved]
  - Drug effect decreased [Not Recovered/Not Resolved]
  - Hypothyroidism [Not Recovered/Not Resolved]
  - Complex regional pain syndrome [Not Recovered/Not Resolved]
  - Cellulitis [Unknown]
